FAERS Safety Report 7924853-5 (Version None)
Quarter: 2011Q4

REPORT INFORMATION
  Report Type: 
  Country: None (occurrence: None)
  Receive Date: 20111118
  Receipt Date: 20110329
  Transmission Date: 20120403
  Serious: No
  Sender: FDA-Public Use
  Company Number: US-AMGEN-USASP2011016674

PATIENT
  Sex: Female

DRUGS (10)
  1. METHOTREXATE [Concomitant]
     Dosage: 2.5 MG, UNK
  2. MULTIVITAMIN                       /00097801/ [Concomitant]
  3. ENBREL [Suspect]
     Indication: PRODUCT USED FOR UNKNOWN INDICATION
     Dosage: 50 MG, QWK
  4. PRILOSEC [Concomitant]
     Dosage: 10 MG, UNK
  5. ASPIRIN [Concomitant]
     Dosage: 81 MG, UNK
  6. IBUPROFEN [Concomitant]
     Dosage: 200 MG, UNK
  7. CALCIUM D                          /00944201/ [Concomitant]
     Dosage: 600 MG, UNK
  8. PRAVACHOL [Concomitant]
     Dosage: 10 MG, UNK
  9. DIOVAN [Concomitant]
     Dosage: 40 MG, UNK
  10. FEXOFENADINE [Concomitant]
     Dosage: 30 MG, UNK

REACTIONS (1)
  - NASOPHARYNGITIS [None]
